FAERS Safety Report 9772273 (Version 5)
Quarter: 2014Q1

REPORT INFORMATION
  Report Type: Report from Study
  Country: US (occurrence: US)
  Receive Date: 20131219
  Receipt Date: 20140214
  Transmission Date: 20141002
  Serious: Yes (Death, Hospitalization)
  Sender: FDA-Public Use
  Company Number: US-ASTELLAS-2013US012521

PATIENT
  Age: 53 Year
  Sex: Male
  Weight: 114 kg

DRUGS (2)
  1. ERLOTINIB TABLET [Suspect]
     Indication: RENAL CELL CARCINOMA
     Dosage: 150 MG, UID/QD
     Route: 048
     Dates: start: 20130516, end: 20131030
  2. TIVANTINIB [Suspect]
     Indication: RENAL CELL CARCINOMA
     Dosage: 360 MG, BID
     Route: 048
     Dates: start: 20130516, end: 20131030

REACTIONS (7)
  - Off label use [Unknown]
  - Atrial flutter [Fatal]
  - Sepsis [Fatal]
  - Pneumonia [Fatal]
  - Respiratory acidosis [Fatal]
  - Respiratory failure [Fatal]
  - Malignant neoplasm progression [Fatal]
